FAERS Safety Report 6618076-X (Version None)
Quarter: 2010Q1

REPORT INFORMATION
  Report Type: 
  Country: None (occurrence: None)
  Receive Date: 20100302
  Receipt Date: 20100215
  Transmission Date: 20100710
  Serious: Yes (Death, Life-Threatening)
  Sender: FDA-Public Use
  Company Number: 2010019310

PATIENT
  Age: 86 Year
  Sex: Female

DRUGS (22)
  1. FRAGMIN [Suspect]
     Indication: THROMBOSIS PROPHYLAXIS
     Dosage: 2500 IU, 1XDAY, SUBCUTANEOUS
     Route: 058
     Dates: start: 20070116, end: 20070125
  2. FUROSEMIDE [Suspect]
     Indication: RENAL FAILURE
     Dosage: INTRAVENOUS
     Route: 042
     Dates: start: 20070116, end: 20070119
  3. POTASSIUM CHLORIDE [Suspect]
     Dosage: INTRAVENOUS
     Route: 042
     Dates: start: 20070116, end: 20070118
  4. DEXTROSE 5% [Suspect]
     Dosage: INTRAVENOUS
     Route: 042
     Dates: start: 20070118, end: 20070119
  5. RINTER LOSUNG (RINGER LOSUNG) [Suspect]
     Indication: ELECTROLYTE SUBSTITUTION THERAPY
     Dosage: INTRAVENOUS
     Route: 042
     Dates: start: 20070116, end: 20070123
  6. ALLOPURINOL [Suspect]
     Indication: HYPERURICAEMIA
     Dosage: 300 MG, 1X/DAY, ORAL
     Route: 048
     Dates: start: 20070116, end: 20070129
  7. FERROSANOL DUODENAL (FERROUS GLYCINE SULFATE) [Suspect]
     Indication: SUPPLEMENTATION THERAPY
     Dosage: ORAL
     Route: 048
     Dates: start: 20070116
  8. BISOPROLOL FUMARATE [Suspect]
     Indication: CARDIAC FAILURE
     Dosage: 5 MG, 3X/DAY, ORAL
     Route: 048
     Dates: start: 20070116
  9. MOLSIDOMINE (MOLSIDOMINE) [Suspect]
     Indication: CARDIAC FAILURE
     Dosage: 8 MG, 2X/DAY, ORAL
     Route: 048
     Dates: start: 20070116
  10. NEXIUM [Suspect]
     Indication: PROPHYLAXIS AGAINST GASTROINTESTINAL ULCER
     Dosage: 20 MG, 1X/DAY, ORAL
     Route: 048
     Dates: start: 20070116
  11. ASPIRIN [Suspect]
     Indication: THROMBOSIS PROPHYLAXIS
     Dosage: 100 MG, 1X/DAY, ORAL
     Route: 048
     Dates: start: 20070116
  12. KALINOR RETARD (POTASSIUM CHLORIDE) [Suspect]
     Indication: SUPPLEMENTATION THERAPY
     Dosage: 6XD, ORAL
     Route: 048
     Dates: start: 20070117, end: 20070118
  13. SODIUM CHLORIDE 0.9% [Suspect]
     Indication: SUPPLEMENTATION THERAPY
     Dosage: INTRAVENOUS
     Route: 042
     Dates: start: 20070119, end: 20070122
  14. FENISTIL (DIMETINDENE MALEATE) [Suspect]
     Dosage: ORAL
     Route: 048
     Dates: start: 20070122
  15. CIPROFLOXACIN HCL [Suspect]
     Indication: INFECTION
     Dosage: 250 MG, 2X/DAY, ORAL
     Route: 048
     Dates: start: 20070123, end: 20070128
  16. EUPHRASIA EYEDROPS ^WELEDA^ (EUPHRASIA EXTRACT) [Suspect]
     Indication: DRY EYE
     Dosage: OPHTHALMIC
     Route: 047
     Dates: start: 20070123
  17. BEPANTHEN CREME (DEXPANTHENOL) EYE OINTMENT [Suspect]
     Indication: DRY EYE
     Dosage: OPHTHALMIC
     Route: 047
     Dates: start: 20070124
  18. ENOXAPARIN SODIUM [Suspect]
     Indication: THROMBOSIS PROPHYLAXIS
     Dosage: 0.5 MG, 2X/DAY, SUBCUTANEOUS
     Route: 058
     Dates: start: 20070126
  19. PREDNISOLONE [Suspect]
     Indication: SKIN LESION
     Dosage: 50 MG, 1X/DAY, INTRAVENOUS
     Route: 042
     Dates: start: 20070128
  20. BENZBROMARONE (BENZBROMARONE) [Suspect]
     Indication: HYPERURICAEMIA
     Dosage: 25 MG, 1X/DAY, ORAL
     Route: 048
     Dates: start: 20070131
  21. TOREM (TORASEMIDE) [Concomitant]
  22. ENALAPRIL MALEATE [Concomitant]

REACTIONS (4)
  - DRY EYE [None]
  - INFECTION [None]
  - STEVENS-JOHNSON SYNDROME [None]
  - TOXIC EPIDERMAL NECROLYSIS [None]
